FAERS Safety Report 24964543 (Version 1)
Quarter: 2025Q1

REPORT INFORMATION
  Report Type: Spontaneous
  Country: CA (occurrence: CA)
  Receive Date: 20250213
  Receipt Date: 20250213
  Transmission Date: 20250409
  Serious: Yes (Other)
  Sender: CSL BEHRING
  Company Number: CA-BEH-2025195268

PATIENT
  Age: 71 Year
  Sex: Female

DRUGS (2)
  1. HUMAN IMMUNOGLOBULIN G [Suspect]
     Active Substance: HUMAN IMMUNOGLOBULIN G
     Indication: Primary immunodeficiency syndrome
     Dosage: 50 G, QMT
     Route: 065
  2. HUMAN IMMUNOGLOBULIN G [Suspect]
     Active Substance: HUMAN IMMUNOGLOBULIN G
     Dosage: 12 G, QW
     Route: 065

REACTIONS (7)
  - Accident [Recovered/Resolved]
  - Contusion [Recovered/Resolved]
  - Infusion site haemorrhage [Recovered/Resolved]
  - Infusion site swelling [Recovered/Resolved]
  - Wrist fracture [Recovered/Resolved]
  - Product administration error [Recovered/Resolved]
  - Incorrect drug administration rate [Recovered/Resolved]
